FAERS Safety Report 21356504 (Version 2)
Quarter: 2022Q4

REPORT INFORMATION
  Report Type: Spontaneous
  Country: US (occurrence: US)
  Receive Date: 20220920
  Receipt Date: 20221006
  Transmission Date: 20230113
  Serious: No
  Sender: FDA-Public Use
  Company Number: US-AIMMUNE THERAPEUTICS, INC.-2022AIMT02324

PATIENT

DRUGS (3)
  1. PALFORZIA [Suspect]
     Active Substance: PEANUT
     Indication: Food allergy
     Dosage: IDE (0.5-6MG), ONCE
     Route: 048
     Dates: start: 20220726, end: 20220726
  2. PALFORZIA [Suspect]
     Active Substance: PEANUT
     Dosage: 12MG, 1XDAY
     Route: 048
     Dates: start: 20220819
  3. PALFORZIA [Suspect]
     Active Substance: PEANUT
     Dosage: 12MG, ONCE, LAST DOSE PRIOR TO EVENT
     Route: 048
     Dates: start: 20220825, end: 20220825

REACTIONS (1)
  - Product storage error [Unknown]

NARRATIVE: CASE EVENT DATE: 20220825
